FAERS Safety Report 8007420-7 (Version None)
Quarter: 2011Q4

REPORT INFORMATION
  Report Type: 
  Country: None (occurrence: None)
  Receive Date: 20111227
  Receipt Date: 20111213
  Transmission Date: 20120403
  Serious: Yes (Hospitalization)
  Sender: FDA-Public Use
  Company Number: US-ELI_LILLY_AND_COMPANY-US201012004787

PATIENT
  Sex: Female

DRUGS (11)
  1. FORTEO [Suspect]
     Dosage: 20 UG, QD
     Route: 065
  2. COUMADIN [Concomitant]
  3. MULTI-VITAMIN [Concomitant]
  4. OMEPRAZOLE [Concomitant]
  5. FORTEO [Suspect]
     Indication: OSTEOPOROSIS
     Dosage: 20 UG, DAILY (1/D)
     Route: 065
     Dates: start: 20101021
  6. ULORIC [Concomitant]
  7. IRON [Concomitant]
  8. FORTEO [Suspect]
     Dosage: 20 UG, QD
  9. POTASSIUM [Concomitant]
  10. BENICAR [Concomitant]
     Dosage: 0.25 DF, UNK
  11. FORTEO [Suspect]
     Dosage: 20 UG, QD

REACTIONS (7)
  - BRAIN CONTUSION [None]
  - INCREASED UPPER AIRWAY SECRETION [None]
  - INJECTION SITE HAEMATOMA [None]
  - HEAD INJURY [None]
  - PNEUMONIA [None]
  - DIZZINESS [None]
  - COUGH [None]
